FAERS Safety Report 4335030-1 (Version None)
Quarter: 2004Q2

REPORT INFORMATION
  Report Type: 
  Country: None (occurrence: None)
  Receive Date: 20040408
  Receipt Date: 20040330
  Transmission Date: 20050107
  Serious: Yes (Other)
  Sender: FDA-Public Use
  Company Number: US-GLAXOSMITHKLINE-A0505092A

PATIENT
  Age: 26 Year
  Sex: Female

DRUGS (3)
  1. PAXIL CR [Suspect]
     Indication: SOCIAL PHOBIA
     Dosage: 62.5MG PER DAY
     Route: 048
     Dates: start: 20020101
  2. WELLBUTRIN XL [Suspect]
     Indication: SOCIAL PHOBIA
     Dosage: 150MG PER DAY
     Route: 048
     Dates: start: 20040322
  3. BUSPAR [Concomitant]

REACTIONS (4)
  - COMPLICATIONS OF MATERNAL EXPOSURE TO THERAPEUTIC DRUGS [None]
  - DRUG EXPOSURE DURING PREGNANCY [None]
  - PREGNANCY [None]
  - SUICIDAL IDEATION [None]
